FAERS Safety Report 4367556-9 (Version None)
Quarter: 2004Q2

REPORT INFORMATION
  Report Type: 
  Country: None (occurrence: None)
  Receive Date: 20040601
  Receipt Date: 20040524
  Transmission Date: 20050107
  Serious: Yes (Hospitalization)
  Sender: FDA-Public Use
  Company Number: US-MERCK-0405USA01756

PATIENT

DRUGS (1)
  1. INVANZ [Suspect]
     Route: 065

REACTIONS (2)
  - ADVERSE EVENT [None]
  - HOSPITALISATION [None]
